FAERS Safety Report 5658031-X (Version None)
Quarter: 2008Q1

REPORT INFORMATION
  Report Type: 
  Country: None (occurrence: None)
  Receive Date: 20080310
  Receipt Date: 20070213
  Transmission Date: 20080703
  Serious: No
  Sender: FDA-Public Use
  Company Number: US-BAYER-200614277BCC

PATIENT
  Sex: Female
  Weight: 70 kg

DRUGS (9)
  1. ALEVE [Suspect]
     Indication: ARTHRITIS
     Dosage: TOTAL DAILY DOSE: 220 MG  UNIT DOSE: 220 MG
     Route: 048
  2. PRESCRIPTION NAPROXEN [Suspect]
  3. PREDNISONE TAB [Concomitant]
     Route: 048
  4. LEVOTHROID [Concomitant]
     Route: 048
  5. GLUCOSAMINE CHONDROITIN [Concomitant]
  6. SAMS VITAMIN B COMPLEX [Concomitant]
  7. SAMS MULTIVITAMIN [Concomitant]
  8. HYDROXYCHLOR [Concomitant]
     Route: 048
  9. CALTRATE WITH VITAMIN D [Concomitant]
     Route: 048

REACTIONS (3)
  - BINOCULAR EYE MOVEMENT DISORDER [None]
  - MUSCLE TWITCHING [None]
  - TRIGEMINAL NERVE DISORDER [None]
